FAERS Safety Report 6773199-X (Version None)
Quarter: 2010Q2

REPORT INFORMATION
  Report Type: 
  Country: None (occurrence: None)
  Receive Date: 20100616
  Receipt Date: 20100505
  Transmission Date: 20101027
  Serious: Yes (Other)
  Sender: FDA-Public Use
  Company Number: PHHY2010US28979

PATIENT
  Age: 89 Year
  Sex: Female

DRUGS (1)
  1. ZOLEDRONIC ACID [Suspect]
     Indication: OSTEOPOROSIS
     Dosage: 4 MG, UNK
     Route: 042

REACTIONS (12)
  - ARTHRALGIA [None]
  - CONJUNCTIVAL HYPERAEMIA [None]
  - CONJUNCTIVAL OEDEMA [None]
  - CRANIAL NERVE DISORDER [None]
  - DIPLOPIA [None]
  - EXTRAOCULAR MUSCLE DISORDER [None]
  - EYE INFLAMMATION [None]
  - EYE PAIN [None]
  - HEADACHE [None]
  - PERIORBITAL FAT HERNIATION [None]
  - VISION BLURRED [None]
  - VISUAL ACUITY REDUCED [None]
